FAERS Safety Report 25545515 (Version 1)
Quarter: 2025Q3

REPORT INFORMATION
  Report Type: Spontaneous
  Country: EU (occurrence: EU)
  Receive Date: 20250711
  Receipt Date: 20250711
  Transmission Date: 20251020
  Serious: Yes (Hospitalization)
  Sender: PFIZER
  Company Number: None

PATIENT
  Age: 77 Year
  Sex: Female
  Weight: 57 kg

DRUGS (3)
  1. METHOTREXATE SODIUM [Suspect]
     Active Substance: METHOTREXATE SODIUM
     Indication: Rheumatoid arthritis
     Dosage: 15 MG, WEEKLY
     Route: 048
  2. CYCLOSPORINE [Suspect]
     Active Substance: CYCLOSPORINE
     Indication: Muscular weakness
     Route: 048
     Dates: end: 202506
  3. SIMPONI [Suspect]
     Active Substance: GOLIMUMAB
     Indication: Rheumatoid arthritis
     Dosage: 1 DF, MONTHLY
     Route: 058
     Dates: end: 202506

REACTIONS (1)
  - Fournier^s gangrene [Recovering/Resolving]

NARRATIVE: CASE EVENT DATE: 20250608
